FAERS Safety Report 18875798 (Version 2)
Quarter: 2021Q3

REPORT INFORMATION
  Report Type: Report from Study
  Country: JP (occurrence: JP)
  Receive Date: 20210210
  Receipt Date: 20210727
  Transmission Date: 20211014
  Serious: Yes (Other)
  Sender: FDA-Public Use
  Company Number: JP-JNJFOC-20210146971

PATIENT
  Age: 63 Year
  Sex: Male

DRUGS (13)
  1. SELEXIPAG [Concomitant]
     Active Substance: SELEXIPAG
     Indication: PORTOPULMONARY HYPERTENSION
     Route: 048
     Dates: start: 20170405
  2. TADALAFIL. [Concomitant]
     Active Substance: TADALAFIL
     Route: 048
     Dates: start: 20170808
  3. SPIRONOLACTONE. [Concomitant]
     Active Substance: SPIRONOLACTONE
     Indication: PORTOPULMONARY HYPERTENSION
     Route: 048
     Dates: start: 20170821
  4. MACITENTAN [Suspect]
     Active Substance: MACITENTAN
     Indication: PULMONARY ARTERIAL HYPERTENSION
     Dosage: IN THE MORNING
     Route: 048
     Dates: start: 20170727, end: 20170807
  5. MACITENTAN [Suspect]
     Active Substance: MACITENTAN
     Dosage: IN THE MORNING
     Route: 048
     Dates: start: 20170808
  6. AMLODIPINE [Concomitant]
     Active Substance: AMLODIPINE BESYLATE
     Indication: HYPERTENSION
     Route: 048
     Dates: start: 20161109
  7. OXYGEN. [Concomitant]
     Active Substance: OXYGEN
     Dosage: DOSE UNKNOWN
     Route: 055
  8. VONOPRAZAN FUMARATE [Concomitant]
     Active Substance: VONOPRAZAN FUMARATE
     Indication: CHRONIC GASTRITIS
     Route: 048
     Dates: start: 20170418
  9. LOPERAMIDE [Concomitant]
     Active Substance: LOPERAMIDE
     Indication: ADVERSE REACTION
     Route: 048
     Dates: start: 20170516
  10. TADALAFIL. [Concomitant]
     Active Substance: TADALAFIL
     Indication: PORTOPULMONARY HYPERTENSION
     Route: 048
     Dates: start: 20170308, end: 20170807
  11. LEDIPASVIR ACETONATE/SOFOSBUVIR [Concomitant]
     Indication: HEPATIC CIRRHOSIS
     Dosage: LEDIPASVIR 90MG, SOFOSBUVIR 400MG
     Route: 048
     Dates: start: 20170511, end: 20170802
  12. AZILSARTAN [Concomitant]
     Active Substance: AZILSARTAN KAMEDOXOMIL
     Indication: HYPERTENSION
     Route: 048
     Dates: start: 20161109
  13. CLOSTRIDIUM BUTYRICUM [Concomitant]
     Active Substance: CLOSTRIDIUM BUTYRICUM SPORES STRAIN M-55
     Indication: ADVERSE REACTION
     Route: 048
     Dates: start: 20170418

REACTIONS (2)
  - Interstitial lung disease [Recovering/Resolving]
  - Anaemia [Recovering/Resolving]

NARRATIVE: CASE EVENT DATE: 20170920
